FAERS Safety Report 13053570 (Version 3)
Quarter: 2017Q1

REPORT INFORMATION
  Report Type: Spontaneous
  Country: IT (occurrence: IT)
  Receive Date: 20161222
  Receipt Date: 20170203
  Transmission Date: 20170428
  Serious: Yes (Other)
  Sender: FDA-Public Use
  Company Number: IT-SUN PHARMACEUTICAL INDUSTRIES LTD-2016RR-130006

PATIENT
  Age: 23 Year
  Sex: Female
  Weight: 66 kg

DRUGS (1)
  1. AMOXICILLIN. [Suspect]
     Active Substance: AMOXICILLIN
     Indication: DRUG ABUSE
     Dosage: 6 G TOTAL, 33+6 GW
     Route: 048
     Dates: start: 20140705, end: 20140705

REACTIONS (4)
  - Intentional self-injury [Recovered/Resolved]
  - Excoriation [Recovered/Resolved]
  - Agitation [Recovered/Resolved]
  - Drug abuse [Recovered/Resolved]

NARRATIVE: CASE EVENT DATE: 20140705
